FAERS Safety Report 6932317-0 (Version None)
Quarter: 2010Q3

REPORT INFORMATION
  Report Type: 
  Country: None (occurrence: None)
  Receive Date: 20100819
  Receipt Date: 20100719
  Transmission Date: 20110219
  Serious: Yes (Hospitalization, Other)
  Sender: FDA-Public Use
  Company Number: US-BAYER-200916081NA

PATIENT
  Age: 46 Year
  Sex: Female
  Weight: 54 kg

DRUGS (6)
  1. YASMIN [Suspect]
     Indication: CONTRACEPTION
     Dosage: TOTAL DAILY DOSE: 1 DF
     Route: 048
     Dates: start: 20071001, end: 20080322
  2. TOPROL-XL [Concomitant]
     Dates: start: 20050501
  3. ACETAMINOPHEN [Concomitant]
     Indication: HEADACHE
  4. METOPROLOL [Concomitant]
     Dosage: TOTAL DAILY DOSE: 50 MG
     Route: 048
  5. XANAX [Concomitant]
     Indication: ANXIETY
     Dosage: AS USED: 1-2 DF
     Route: 048
  6. AMBIEN [Concomitant]
     Indication: INSOMNIA
     Dosage: AS USED: 1-2 DF
     Route: 048

REACTIONS (2)
  - PAIN [None]
  - PULMONARY EMBOLISM [None]
